FAERS Safety Report 13456762 (Version 1)
Quarter: 2017Q2

REPORT INFORMATION
  Report Type: Spontaneous
  Country: AU (occurrence: AU)
  Receive Date: 20170419
  Receipt Date: 20170419
  Transmission Date: 20170830
  Serious: Yes (Other)
  Sender: FDA-Public Use
  Company Number: AU-APOTEX-2017AP010693

PATIENT
  Sex: Male

DRUGS (2)
  1. APO-CABERGOLINE [Suspect]
     Active Substance: CABERGOLINE
     Indication: SECONDARY HYPOGONADISM
     Dosage: UNK
     Route: 065
  2. APO-CABERGOLINE [Suspect]
     Active Substance: CABERGOLINE
     Indication: PROLACTIN-PRODUCING PITUITARY TUMOUR
     Dosage: 0.25 MG, TWICE WEEKLY
     Route: 065

REACTIONS (2)
  - Drug use disorder [Recovered/Resolved]
  - Testotoxicosis [Recovered/Resolved]
